FAERS Safety Report 17704357 (Version 1)
Quarter: 2020Q2

REPORT INFORMATION
  Report Type: Spontaneous
  Country: US (occurrence: US)
  Receive Date: 20200424
  Receipt Date: 20200424
  Transmission Date: 20200714
  Serious: No
  Sender: FDA-Public Use
  Company Number: US-TEVA-2020-US-1227111

PATIENT
  Sex: Female
  Weight: 68.1 kg

DRUGS (5)
  1. AUSTEDO [Suspect]
     Active Substance: DEUTETRABENAZINE
     Indication: HUNTINGTON^S DISEASE
     Route: 048
     Dates: start: 2016
  2. ADVIL [Concomitant]
     Active Substance: IBUPROFEN
  3. ASPIRIN. [Concomitant]
     Active Substance: ASPIRIN
  4. VITAMIN D3 [Concomitant]
     Active Substance: CHOLECALCIFEROL
  5. MULTIVITAMIN [Concomitant]
     Active Substance: VITAMINS

REACTIONS (1)
  - Dyskinesia [Unknown]
